FAERS Safety Report 4727625-8 (Version None)
Quarter: 2005Q3

REPORT INFORMATION
  Report Type: 
  Country: None (occurrence: None)
  Receive Date: 20050727
  Receipt Date: 20050727
  Transmission Date: 20060218
  Serious: Yes (Other)
  Sender: FDA-Public Use
  Company Number: None

PATIENT
  Age: 81 Year
  Sex: Male

DRUGS (2)
  1. EPLERENONE 50 MG [Suspect]
     Indication: CARDIAC FAILURE CONGESTIVE
     Dosage: 50 MG DAILY ORAL
     Route: 048
  2. FOSINOPRIL SODIUM [Concomitant]

REACTIONS (1)
  - HYPERKALAEMIA [None]
